FAERS Safety Report 8605785-6 (Version None)
Quarter: 2012Q3

REPORT INFORMATION
  Report Type: 
  Country: None (occurrence: None)
  Receive Date: 20120820
  Receipt Date: 20120810
  Transmission Date: 20120928
  Serious: Yes (Other)
  Sender: FDA-Public Use
  Company Number: US-ASTRAZENECA-2012SE56875

PATIENT
  Age: 84 Year
  Sex: Female

DRUGS (3)
  1. METOPROLOL TARTRATE [Concomitant]
  2. NEXIUM [Suspect]
     Route: 048
  3. PRILOSEC [Suspect]
     Route: 048

REACTIONS (8)
  - CEREBROVASCULAR ACCIDENT [None]
  - DIVERTICULITIS [None]
  - HIATUS HERNIA [None]
  - ARTHRALGIA [None]
  - DRUG INEFFECTIVE [None]
  - THROMBOSIS [None]
  - LYMPHADENOPATHY [None]
  - OESOPHAGEAL DISORDER [None]
